FAERS Safety Report 5096002-5 (Version None)
Quarter: 2006Q3

REPORT INFORMATION
  Report Type: 
  Country: None (occurrence: None)
  Receive Date: 20060905
  Receipt Date: 20060818
  Transmission Date: 20061208
  Serious: Yes (Hospitalization)
  Sender: FDA-Public Use
  Company Number: FR-GLAXOSMITHKLINE-B0435503A

PATIENT
  Age: 42 Year
  Sex: Male

DRUGS (8)
  1. SERETIDE [Suspect]
     Dosage: 2PUFF PER DAY
     Route: 055
  2. NORVIR [Suspect]
     Indication: HIV INFECTION
     Dosage: 2TAB PER DAY
     Route: 048
     Dates: start: 20051021
  3. TELZIR [Concomitant]
     Indication: HIV INFECTION
     Dosage: 2UNIT PER DAY
     Route: 048
     Dates: start: 20051021
  4. EPIVIR [Concomitant]
     Indication: HIV INFECTION
     Route: 048
     Dates: start: 20051021
  5. VENTOLIN [Concomitant]
     Indication: ASTHMA
     Route: 055
  6. VIREAD [Concomitant]
     Indication: HIV INFECTION
     Dosage: 1UNIT PER DAY
     Route: 048
     Dates: start: 20051021
  7. VALIUM [Concomitant]
     Dosage: 2UNIT PER DAY
  8. SUBUTEX [Concomitant]
     Dosage: 8MG PER DAY

REACTIONS (4)
  - ADRENAL INSUFFICIENCY [None]
  - DRUG INTERACTION [None]
  - OEDEMA PERIPHERAL [None]
  - WEIGHT INCREASED [None]
